FAERS Safety Report 5927095-8 (Version None)
Quarter: 2008Q4

REPORT INFORMATION
  Report Type: 
  Country: None (occurrence: None)
  Receive Date: 20081022
  Receipt Date: 20081021
  Transmission Date: 20090506
  Serious: Yes (Death)
  Sender: FDA-Public Use
  Company Number: JP-B.I. PHARMACEUTICALS,INC./RIDGEFIELD-2008-BP-15054NB

PATIENT
  Sex: Male
  Weight: 34.6 kg

DRUGS (4)
  1. MICARDIS [Suspect]
     Indication: HYPERTENSION
     Dosage: 40MG
     Route: 048
     Dates: start: 20060622, end: 20080222
  2. NORVASC [Concomitant]
     Dosage: 5MG
     Route: 048
     Dates: start: 20060802, end: 20080222
  3. CALVAN [Concomitant]
     Dosage: 2ANZ
     Route: 048
     Dates: start: 20060702, end: 20080222
  4. ANPLAG [Concomitant]
     Dosage: 3ANZ
     Route: 048
     Dates: start: 20060622, end: 20080222

REACTIONS (2)
  - CAPLAN'S SYNDROME [None]
  - HEPATIC FUNCTION ABNORMAL [None]
